FAERS Safety Report 17760869 (Version 4)
Quarter: 2020Q2

REPORT INFORMATION
  Report Type: Spontaneous
  Country: US (occurrence: US)
  Receive Date: 20200508
  Receipt Date: 20200624
  Transmission Date: 20200714
  Serious: No
  Sender: FDA-Public Use
  Company Number: US-PFIZER INC-2020182645

PATIENT
  Age: 75 Year
  Sex: Female
  Weight: 68.03 kg

DRUGS (2)
  1. IBRANCE [Suspect]
     Active Substance: PALBOCICLIB
     Indication: BREAST CANCER FEMALE
     Dosage: 100 MG, CYCLIC (TAKE ONE DAILY FOR 21 DAYS AND 7 DAYS OFF)
     Route: 048
     Dates: start: 20200506
  2. FASLODEX [Concomitant]
     Active Substance: FULVESTRANT
     Dosage: UNK, CYCLIC (EVERY 4 WEEKS)

REACTIONS (3)
  - Limb injury [Unknown]
  - Product blister packaging issue [Unknown]
  - Product storage error [Unknown]
